FAERS Safety Report 8153581-9 (Version None)
Quarter: 2012Q1

REPORT INFORMATION
  Report Type: 
  Country: None (occurrence: None)
  Receive Date: 20120216
  Receipt Date: 20120216
  Transmission Date: 20120608
  Serious: Yes (Hospitalization, Other)
  Sender: FDA-Public Use
  Company Number: None

PATIENT
  Age: 61 Year
  Sex: Female

DRUGS (23)
  1. ZOLPIDEM [Concomitant]
  2. ARMODAFINIL [Concomitant]
  3. SPIRIVA [Concomitant]
  4. VYTORIN [Concomitant]
  5. VELCADE [Concomitant]
  6. SEPTRA DS [Concomitant]
  7. ALBUTEROL [Concomitant]
  8. COLACE [Concomitant]
  9. PROZAC [Concomitant]
  10. ACTOS [Concomitant]
  11. PEPCID [Concomitant]
  12. DECADRON [Concomitant]
  13. ATROVENT [Concomitant]
  14. REVLIMID [Concomitant]
  15. ACYCLOVIR [Concomitant]
  16. LOSARTAN POTASSIUM [Concomitant]
  17. TEMSIROLIMUS [Concomitant]
  18. COMPAZINE [Concomitant]
  19. REVLIMID [Suspect]
     Indication: LEUKAEMIA PLASMACYTIC
     Dosage: 1MG QDX14D/21D ORALLY 3 CYCLES
     Route: 048
  20. CECLOR [Concomitant]
  21. NOVOLIN R [Concomitant]
  22. ZYLOPRIM [Concomitant]
  23. OS-CAL 500 [Concomitant]

REACTIONS (3)
  - NEUROPATHY PERIPHERAL [None]
  - DEEP VEIN THROMBOSIS [None]
  - PNEUMONIA [None]
